FAERS Safety Report 6862994-4 (Version None)
Quarter: 2010Q3

REPORT INFORMATION
  Report Type: 
  Country: None (occurrence: None)
  Receive Date: 20100721
  Receipt Date: 20100712
  Transmission Date: 20110219
  Serious: Yes (Other)
  Sender: FDA-Public Use
  Company Number: PT-PFIZER INC-2010087469

PATIENT
  Age: 57 Year
  Sex: Male

DRUGS (1)
  1. ZARATOR [Suspect]
     Dosage: UNK
     Route: 048

REACTIONS (4)
  - DIABETES MELLITUS [None]
  - FAT INTOLERANCE [None]
  - GALLBLADDER DISORDER [None]
  - HEPATIC STEATOSIS [None]
